FAERS Safety Report 4835823-8 (Version None)
Quarter: 2005Q4

REPORT INFORMATION
  Report Type: 
  Country: None (occurrence: None)
  Receive Date: 20051123
  Receipt Date: 20051118
  Transmission Date: 20060501
  Serious: Yes (Death, Hospitalization)
  Sender: FDA-Public Use
  Company Number: 2005SE06665

PATIENT
  Age: 76 Year
  Sex: Female
  Weight: 84 kg

DRUGS (4)
  1. KENZEN [Suspect]
     Indication: HYPERTENSION
     Route: 048
     Dates: start: 20050415, end: 20051012
  2. CARTREX [Suspect]
     Indication: OSTEOARTHRITIS
     Route: 048
     Dates: start: 20050815, end: 20051012
  3. DOLIPRANE [Suspect]
     Indication: OSTEOARTHRITIS
     Route: 048
     Dates: start: 20050815, end: 20051012
  4. SOTALOL HCL [Suspect]
     Indication: TACHYARRHYTHMIA
     Route: 048
     Dates: start: 20050415, end: 20051012

REACTIONS (3)
  - CHOLESTASIS [None]
  - HEPATIC ENZYME INCREASED [None]
  - HEPATIC FAILURE [None]
